FAERS Safety Report 6184684-6 (Version None)
Quarter: 2009Q2

REPORT INFORMATION
  Report Type: 
  Country: None (occurrence: None)
  Receive Date: 20090508
  Receipt Date: 20090428
  Transmission Date: 20091009
  Serious: Yes (Hospitalization, Disabling, Other)
  Sender: FDA-Public Use
  Company Number: JP-PFIZER INC-2009206469

PATIENT
  Age: 82 Year

DRUGS (5)
  1. AZULFIDINE [Suspect]
     Dosage: 500 MG, 1X/DAY
     Dates: start: 20081022, end: 20090417
  2. RHEUMATREX [Suspect]
     Indication: RHEUMATOID ARTHRITIS
     Dates: start: 20081022, end: 20090417
  3. PREDNISOLONE [Concomitant]
  4. ONE-ALPHA [Concomitant]
  5. LOXONIN [Concomitant]

REACTIONS (6)
  - ANAEMIA [None]
  - CALCULUS BLADDER [None]
  - CYSTITIS NONINFECTIVE [None]
  - GASTROINTESTINAL HAEMORRHAGE [None]
  - RENAL FAILURE ACUTE [None]
  - URINARY BLADDER HAEMORRHAGE [None]
